FAERS Safety Report 7620937-X (Version None)
Quarter: 2011Q3

REPORT INFORMATION
  Report Type: 
  Country: None (occurrence: None)
  Receive Date: 20110719
  Receipt Date: 20110712
  Transmission Date: 20111222
  Serious: Yes (Hospitalization, Other)
  Sender: FDA-Public Use
  Company Number: US-MERCK-1104USA01936

PATIENT
  Age: 56 Year
  Sex: Female
  Weight: 53 kg

DRUGS (4)
  1. FOSAMAX PLUS D [Suspect]
     Indication: OSTEOPOROSIS
     Route: 048
     Dates: start: 20060222, end: 20060929
  2. FOSAMAX [Suspect]
     Indication: OSTEOPOROSIS
     Route: 048
     Dates: start: 20020101, end: 20080501
  3. FOSAMAX [Suspect]
     Route: 048
     Dates: start: 20041120
  4. BONIVA [Suspect]
     Indication: OSTEOPOROSIS
     Route: 065
     Dates: start: 20080501, end: 20090101

REACTIONS (48)
  - RENAL CYST [None]
  - POOR PERSONAL HYGIENE [None]
  - LOWER LIMB FRACTURE [None]
  - BLOOD CHOLESTEROL INCREASED [None]
  - HYPOPHAGIA [None]
  - SENILE DEMENTIA [None]
  - ECCHYMOSIS [None]
  - PERIODONTAL DISEASE [None]
  - FOLATE DEFICIENCY [None]
  - OEDEMA [None]
  - NASAL SEPTUM DEVIATION [None]
  - IRON DEFICIENCY [None]
  - DISTURBANCE IN ATTENTION [None]
  - FRACTURE [None]
  - FALL [None]
  - RED BLOOD CELL SEDIMENTATION RATE INCREASED [None]
  - HEAD INJURY [None]
  - ATELECTASIS [None]
  - TREATMENT NONCOMPLIANCE [None]
  - LYMPHADENOPATHY [None]
  - PERIOSTITIS [None]
  - TOOTH FRACTURE [None]
  - FAILURE TO THRIVE [None]
  - OSTEONECROSIS OF JAW [None]
  - OVERDOSE [None]
  - OSTEOMYELITIS [None]
  - SYNCOPE [None]
  - SENSITIVITY OF TEETH [None]
  - DRUG LEVEL INCREASED [None]
  - FEMUR FRACTURE [None]
  - PNEUMONIA [None]
  - DEHYDRATION [None]
  - PERICARDIAL EFFUSION [None]
  - BIPOLAR DISORDER [None]
  - JAW DISORDER [None]
  - BONE LOSS [None]
  - HYPERLIPIDAEMIA [None]
  - DEPRESSION [None]
  - DECREASED APPETITE [None]
  - TOOTH ABSCESS [None]
  - FACIAL BONES FRACTURE [None]
  - HIP FRACTURE [None]
  - DENTAL FISTULA [None]
  - DENTAL CARIES [None]
  - C-REACTIVE PROTEIN INCREASED [None]
  - IMPAIRED HEALING [None]
  - GINGIVITIS [None]
  - ORAL INFECTION [None]
